FAERS Safety Report 7979231-X (Version None)
Quarter: 2011Q4

REPORT INFORMATION
  Report Type: 
  Country: None (occurrence: None)
  Receive Date: 20111214
  Receipt Date: 20111205
  Transmission Date: 20120403
  Serious: No
  Sender: FDA-Public Use
  Company Number: US-JNJFOC-20111202263

PATIENT
  Sex: Male
  Weight: 79.38 kg

DRUGS (5)
  1. DURAGESIC-100 [Suspect]
     Indication: PRODUCT USED FOR UNKNOWN INDICATION
     Route: 062
     Dates: start: 20100101
  2. PROZAC [Concomitant]
     Indication: ANTIDEPRESSANT THERAPY
     Route: 048
  3. OXYCONTIN [Concomitant]
     Indication: PAIN
     Route: 048
  4. NEURONTIN [Concomitant]
     Indication: SCIATICA
     Route: 048
  5. KLONOPIN [Concomitant]
     Indication: GENERALISED ANXIETY DISORDER
     Route: 048

REACTIONS (3)
  - INAPPROPRIATE SCHEDULE OF DRUG ADMINISTRATION [None]
  - MALAISE [None]
  - ADVERSE EVENT [None]
